FAERS Safety Report 24002037 (Version 1)
Quarter: 2024Q2

REPORT INFORMATION
  Report Type: Report from Study
  Country: US (occurrence: US)
  Receive Date: 20240622
  Receipt Date: 20240622
  Transmission Date: 20240715
  Serious: Yes (Other)
  Sender: FDA-Public Use
  Company Number: US-ABBVIE-5808344

PATIENT
  Age: 47 Year
  Sex: Female

DRUGS (1)
  1. RINVOQ [Suspect]
     Active Substance: UPADACITINIB
     Indication: Rheumatoid arthritis
     Dosage: RINVOQ 15 MG, TAKE 1 TABLET DAILY
     Route: 048
     Dates: start: 2022

REACTIONS (7)
  - Pneumothorax [Unknown]
  - Respiratory disorder [Unknown]
  - Intervertebral disc protrusion [Unknown]
  - Exposure to communicable disease [Unknown]
  - Wheezing [Unknown]
  - Back pain [Unknown]
  - Nasopharyngitis [Unknown]

NARRATIVE: CASE EVENT DATE: 20231101
